FAERS Safety Report 20860844 (Version 1)
Quarter: 2022Q2

REPORT INFORMATION
  Report Type: Spontaneous
  Country: CN (occurrence: CN)
  Receive Date: 20220523
  Receipt Date: 20220523
  Transmission Date: 20220721
  Serious: Yes (Other)
  Sender: FDA-Public Use
  Company Number: CN-BAYER-2022A073016

PATIENT
  Age: 69 Year
  Sex: Female
  Weight: 57 kg

DRUGS (1)
  1. AVELOX [Suspect]
     Active Substance: MOXIFLOXACIN HYDROCHLORIDE
     Indication: Cervicitis
     Dosage: 0.4 G, QD
     Route: 041
     Dates: start: 20220510, end: 20220510

REACTIONS (5)
  - Injection site erythema [Recovering/Resolving]
  - Injection site pruritus [Recovering/Resolving]
  - Flushing [Recovered/Resolved]
  - Rash pruritic [Recovering/Resolving]
  - Off label use [None]

NARRATIVE: CASE EVENT DATE: 20220510
